FAERS Safety Report 6835337-X (Version None)
Quarter: 2010Q3

REPORT INFORMATION
  Report Type: 
  Country: None (occurrence: None)
  Receive Date: 20100713
  Receipt Date: 20070421
  Transmission Date: 20110219
  Serious: Yes (Other)
  Sender: FDA-Public Use
  Company Number: PFIZER INC-2007032922

PATIENT
  Sex: Male
  Weight: 68.181 kg

DRUGS (1)
  1. CHANTIX [Suspect]
     Indication: SMOKING CESSATION THERAPY
     Route: 048
     Dates: start: 20070415

REACTIONS (3)
  - BLOOD PRESSURE INCREASED [None]
  - FLATULENCE [None]
  - MALAISE [None]
